FAERS Safety Report 5128553-9 (Version None)
Quarter: 2006Q4

REPORT INFORMATION
  Report Type: 
  Country: None (occurrence: None)
  Receive Date: 20061017
  Receipt Date: 20060921
  Transmission Date: 20070319
  Serious: Yes (Other)
  Sender: FDA-Public Use
  Company Number: US-GLAXOSMITHKLINE-A0621074A

PATIENT
  Age: 66 Year
  Sex: Male
  Weight: 96.8 kg

DRUGS (10)
  1. COREG [Suspect]
     Indication: DRUG USE FOR UNKNOWN INDICATION
     Route: 048
  2. ACEON [Concomitant]
     Dosage: 8MG PER DAY
  3. ACIPHEX [Concomitant]
     Dosage: 20MG PER DAY
  4. TRIAMTERENE AND HYDROCHLOROTHIAZIDE [Concomitant]
  5. LIPITOR [Concomitant]
     Dosage: 40MG PER DAY
  6. AVANDIA [Concomitant]
     Dosage: 4MG PER DAY
     Route: 048
  7. METFORMIN HCL [Concomitant]
     Dosage: 500MG TWICE PER DAY
     Route: 048
  8. NIFEDIPINE [Concomitant]
     Dosage: 50MG PER DAY
  9. LYRICA [Concomitant]
     Dosage: 75MG PER DAY
  10. ASPIRIN [Concomitant]
     Dosage: 81MG PER DAY
     Route: 048

REACTIONS (1)
  - NEUROPATHY [None]
